FAERS Safety Report 6120996-X (Version None)
Quarter: 2009Q1

REPORT INFORMATION
  Report Type: 
  Country: None (occurrence: None)
  Receive Date: 20090317
  Receipt Date: 20090305
  Transmission Date: 20090719
  Serious: Yes (Hospitalization)
  Sender: FDA-Public Use
  Company Number: PHEH2009US01436

PATIENT
  Sex: Male

DRUGS (2)
  1. GLEEVEC [Suspect]
     Indication: LEUKAEMIA
     Dosage: 600 MG, QD
     Route: 048
     Dates: start: 20060510
  2. ANTIBIOTICS [Interacting]

REACTIONS (4)
  - CHRONIC OBSTRUCTIVE PULMONARY DISEASE [None]
  - DYSPNOEA [None]
  - PERICARDIAL EFFUSION [None]
  - TREMOR [None]
